FAERS Safety Report 17369383 (Version 1)
Quarter: 2020Q1

REPORT INFORMATION
  Report Type: Spontaneous
  Country: US (occurrence: US)
  Receive Date: 20200121
  Receipt Date: 20200121
  Transmission Date: 20200409
  Serious: No
  Sender: FDA-Public Use
  Company Number: None

PATIENT
  Sex: Male

DRUGS (1)
  1. GENVOYA [Suspect]
     Active Substance: COBICISTAT\ELVITEGRAVIR\EMTRICITABINE\TENOFOVIR ALAFENAMIDE FUMARATE
     Indication: HIV INFECTION
     Dosage: ?          OTHER STRENGTH:150/150/200/10;OTHER DOSE:1 TABLET;?
     Route: 048
     Dates: start: 20191101

REACTIONS (7)
  - Muscular weakness [None]
  - Bone pain [None]
  - Hypoaesthesia [None]
  - Paraesthesia [None]
  - Flatulence [None]
  - Myalgia [None]
  - Diarrhoea [None]
